FAERS Safety Report 25461868 (Version 1)
Quarter: 2025Q2

REPORT INFORMATION
  Report Type: Report from Study
  Country: US (occurrence: US)
  Receive Date: 20250620
  Receipt Date: 20250620
  Transmission Date: 20250717
  Serious: Yes (Hospitalization, Other)
  Sender: AGIOS PHARMACEUTICALS
  Company Number: US-AGIOS-2505US04291

PATIENT
  Sex: Female

DRUGS (1)
  1. MITAPIVAT [Suspect]
     Active Substance: MITAPIVAT
     Indication: Haemolytic anaemia enzyme specific
     Route: 048
     Dates: start: 20220904

REACTIONS (3)
  - Atrial fibrillation [Unknown]
  - Pericardial effusion [Unknown]
  - Off label use [Unknown]
